FAERS Safety Report 13410166 (Version 7)
Quarter: 2018Q3

REPORT INFORMATION
  Report Type: Spontaneous
  Country: US (occurrence: US)
  Receive Date: 20170406
  Receipt Date: 20180717
  Transmission Date: 20181010
  Serious: Yes (Other)
  Sender: FDA-Public Use
  Company Number: PHHY2017US051545

PATIENT
  Sex: Female

DRUGS (2)
  1. ZOFRAN [Suspect]
     Active Substance: ONDANSETRON HYDROCHLORIDE
     Indication: VOMITING IN PREGNANCY
     Dosage: 4 MG, UNK
     Route: 042
  2. ZOFRAN [Suspect]
     Active Substance: ONDANSETRON HYDROCHLORIDE
     Indication: VOMITING IN PREGNANCY
     Route: 065

REACTIONS (14)
  - Vaginal haemorrhage [Unknown]
  - Anaemia [Unknown]
  - Cardiac disorder [Unknown]
  - Nephropathy [Unknown]
  - Insomnia [Unknown]
  - Product use in unapproved indication [Unknown]
  - Maternal exposure during pregnancy [Unknown]
  - Ovarian cyst [Unknown]
  - Hypertension [Unknown]
  - Epilepsy [Unknown]
  - Abdominal pain [Unknown]
  - Subchorionic haemorrhage [Unknown]
  - Depression [Unknown]
  - Dizziness [Unknown]
